FAERS Safety Report 24254080 (Version 1)
Quarter: 2024Q3

REPORT INFORMATION
  Report Type: Spontaneous
  Country: US (occurrence: US)
  Receive Date: 20240827
  Receipt Date: 20240827
  Transmission Date: 20241017
  Serious: No
  Sender: ROCHE
  Company Number: US-ROCHE-10000065624

PATIENT
  Sex: Female

DRUGS (7)
  1. ACTEMRA [Suspect]
     Active Substance: TOCILIZUMAB
     Indication: Rheumatoid arthritis
     Route: 058
  2. ACTEMRA [Suspect]
     Active Substance: TOCILIZUMAB
  3. ZOCOR [Concomitant]
     Active Substance: SIMVASTATIN
  4. PREDNISONE [Concomitant]
     Active Substance: PREDNISONE
  5. IBUPROFEN [Concomitant]
     Active Substance: IBUPROFEN
  6. FOLIC ACID [Concomitant]
     Active Substance: FOLIC ACID
  7. SYNTHROID [Concomitant]
     Active Substance: LEVOTHYROXINE SODIUM

REACTIONS (2)
  - Intentional product misuse [Unknown]
  - No adverse event [Unknown]
